FAERS Safety Report 7474666-6 (Version None)
Quarter: 2011Q2

REPORT INFORMATION
  Report Type: 
  Country: None (occurrence: None)
  Receive Date: 20110505
  Receipt Date: 20110420
  Transmission Date: 20111010
  Serious: Yes (Other)
  Sender: FDA-Public Use
  Company Number: 030758

PATIENT
  Sex: Male
  Weight: 60 kg

DRUGS (4)
  1. LACOSAMIDE [Suspect]
     Indication: EPILEPSY
     Dosage: (SINGLE DOSE:200,DAILY DOSE 400 ORAL)
     Route: 048
     Dates: start: 20101007
  2. KEPPRA [Concomitant]
  3. VALPROAT [Concomitant]
  4. CLONAZEPAM [Concomitant]

REACTIONS (3)
  - LEUKOCYTOSIS [None]
  - PLEURAL EFFUSION [None]
  - DYSPHAGIA [None]
